FAERS Safety Report 5151286-X (Version None)
Quarter: 2006Q4

REPORT INFORMATION
  Report Type: 
  Country: None (occurrence: None)
  Receive Date: 20061115
  Receipt Date: 20061025
  Transmission Date: 20070319
  Serious: Yes (Other)
  Sender: FDA-Public Use
  Company Number: 2006AP05168

PATIENT
  Sex: Female

DRUGS (4)
  1. ANAPEINE [Suspect]
     Indication: KNEE ARTHROPLASTY
     Route: 008
  2. PROPOFOL [Suspect]
     Indication: KNEE ARTHROPLASTY
     Route: 042
  3. MARCAINE [Suspect]
     Indication: KNEE ARTHROPLASTY
     Route: 008
  4. MARCAINE [Suspect]
     Indication: KNEE ARTHROPLASTY
     Route: 037

REACTIONS (2)
  - FEELING ABNORMAL [None]
  - PARALYSIS [None]
